FAERS Safety Report 5679917-6 (Version None)
Quarter: 2008Q1

REPORT INFORMATION
  Report Type: 
  Country: None (occurrence: None)
  Receive Date: 20080324
  Receipt Date: 20080314
  Transmission Date: 20080703
  Serious: Yes (Hospitalization, Other)
  Sender: FDA-Public Use
  Company Number: 2008SP005356

PATIENT
  Age: 21 Year
  Sex: Female

DRUGS (5)
  1. DESLORATADINE [Suspect]
     Indication: DRUG USE FOR UNKNOWN INDICATION
     Dosage: PO
     Route: 048
     Dates: start: 20080126, end: 20080129
  2. DEPAKENE [Suspect]
     Indication: DRUG USE FOR UNKNOWN INDICATION
     Dosage: 2 DF;  QD; PO
     Route: 048
     Dates: end: 20080131
  3. EPITOMAX [Concomitant]
  4. URBANYL [Concomitant]
  5. FORLAX [Concomitant]

REACTIONS (10)
  - ANOREXIA [None]
  - DEPRESSED LEVEL OF CONSCIOUSNESS [None]
  - GENERAL PHYSICAL HEALTH DETERIORATION [None]
  - HYPOREFLEXIA [None]
  - HYPOTENSION [None]
  - PULMONARY CONGESTION [None]
  - REYE'S SYNDROME [None]
  - SUPERINFECTION [None]
  - TACHYCARDIA [None]
  - VARICELLA [None]
